FAERS Safety Report 18549172 (Version 1)
Quarter: 2020Q4

REPORT INFORMATION
  Report Type: Spontaneous
  Country: LV (occurrence: LV)
  Receive Date: 20201126
  Receipt Date: 20201126
  Transmission Date: 20210114
  Serious: Yes (Hospitalization)
  Sender: FDA-Public Use
  Company Number: LV-TEVA-2020-LV-1852029

PATIENT
  Age: 71 Year
  Sex: Female
  Weight: 71 kg

DRUGS (2)
  1. NEBIVOLOL ACTAVIS 5 MG TABLETES [Suspect]
     Active Substance: NEBIVOLOL
     Indication: HYPERTENSION
     Dosage: 2.5MG
     Route: 048
     Dates: start: 20201022, end: 20201029
  2. CO-AMLESSA 8 MG/10 MG/2,5 MG [Suspect]
     Active Substance: AMLODIPINE\INDAPAMIDE\PERINDOPRIL
     Indication: HYPERTENSION
     Dosage: FOR ACTIVE INGREDIENT INDAPAMIDE THE STRENGTH IS 2.5 MILLIGRAM .?FOR ACTIVE INGREDIENT AMLODIPINE TH
     Route: 048
     Dates: start: 20201022, end: 20201027

REACTIONS (3)
  - Dizziness [Recovering/Resolving]
  - Atrial fibrillation [Recovering/Resolving]
  - Nausea [Recovering/Resolving]

NARRATIVE: CASE EVENT DATE: 20201022
